APPROVED DRUG PRODUCT: CARBIDOPA AND LEVODOPA
Active Ingredient: CARBIDOPA; LEVODOPA
Strength: 25MG;250MG
Dosage Form/Route: TABLET;ORAL
Application: A073607 | Product #001 | TE Code: AB
Applicant: DR REDDYS LABORATORIES SA
Approved: Aug 28, 1992 | RLD: No | RS: No | Type: RX